FAERS Safety Report 5700421-0 (Version None)
Quarter: 2008Q2

REPORT INFORMATION
  Report Type: 
  Country: None (occurrence: None)
  Receive Date: 20080410
  Receipt Date: 20080331
  Transmission Date: 20081010
  Serious: Yes (Other)
  Sender: FDA-Public Use
  Company Number: MY-PFIZER INC-2008021699

PATIENT
  Sex: Female

DRUGS (3)
  1. CADUET [Suspect]
     Dosage: TEXT:5 MG/10 MG
     Route: 048
  2. AMILORIDE HCL AND HYDROCHLOROTHIAZIDE [Concomitant]
     Dosage: FREQ:ONCE DAILY
     Route: 048
  3. GLICLAZIDE [Concomitant]
     Route: 048

REACTIONS (2)
  - ABASIA [None]
  - GOUT [None]
